FAERS Safety Report 14335602 (Version 1)
Quarter: 2017Q4

REPORT INFORMATION
  Report Type: Spontaneous
  Country: ES (occurrence: ES)
  Receive Date: 20171229
  Receipt Date: 20171229
  Transmission Date: 20180321
  Serious: Yes (Other)
  Sender: FDA-Public Use
  Company Number: ES-TEVA-2017-ES-838251

PATIENT
  Age: 11 Year
  Sex: Male

DRUGS (1)
  1. AMOXICILLIN. [Suspect]
     Active Substance: AMOXICILLIN
     Indication: PHARYNGOTONSILLITIS
     Dosage: 50 MG/KG DAILY;
     Route: 065

REACTIONS (1)
  - Binocular eye movement disorder [Recovered/Resolved]
